FAERS Safety Report 21087572 (Version 1)
Quarter: 2022Q3

REPORT INFORMATION
  Report Type: Spontaneous
  Country: TR (occurrence: TR)
  Receive Date: 20220715
  Receipt Date: 20220715
  Transmission Date: 20221027
  Serious: Yes (Other)
  Sender: FDA-Public Use
  Company Number: TR-BRISTOL-MYERS SQUIBB COMPANY-2022-070122

PATIENT
  Age: 42 Year
  Sex: Male

DRUGS (3)
  1. NIVOLUMAB [Suspect]
     Active Substance: NIVOLUMAB
     Indication: Malignant melanoma
     Route: 065
     Dates: start: 202003
  2. NIVOLUMAB [Suspect]
     Active Substance: NIVOLUMAB
     Route: 065
     Dates: start: 202007
  3. IPILIMUMAB [Suspect]
     Active Substance: IPILIMUMAB
     Indication: Malignant melanoma
     Route: 065
     Dates: start: 202003

REACTIONS (2)
  - Colitis [Unknown]
  - Granulomatous lymphadenitis [Recovered/Resolved]
